FAERS Safety Report 24615962 (Version 1)
Quarter: 2024Q4

REPORT INFORMATION
  Report Type: Spontaneous
  Country: PH (occurrence: PH)
  Receive Date: 20241113
  Receipt Date: 20241113
  Transmission Date: 20250114
  Serious: Yes (Other)
  Sender: MERCK
  Company Number: PH-009507513-2411PHL003007

PATIENT
  Age: 40 Year
  Sex: Female

DRUGS (5)
  1. JANUVIA [Suspect]
     Active Substance: SITAGLIPTIN PHOSPHATE
     Indication: Type 2 diabetes mellitus
     Dosage: 100 MG, ONCE DAILY
     Route: 048
     Dates: start: 202306
  2. HYDROXYUREA [Suspect]
     Active Substance: HYDROXYUREA
     Indication: Essential thrombocythaemia
     Dosage: 500 MG, ONCE DAILY
     Route: 048
     Dates: start: 202010
  3. XIGDUO XR [Concomitant]
     Active Substance: DAPAGLIFLOZIN PROPANEDIOL\METFORMIN HYDROCHLORIDE
     Dosage: 10 MG TABLET, ONCE A DAY AT BEDTIME
     Route: 048
     Dates: start: 202306
  4. ASPIRIN [Concomitant]
     Active Substance: ASPIRIN
     Indication: Essential thrombocythaemia
     Dosage: 80 MG, ONCE DAILY
     Route: 048
     Dates: start: 202010
  5. HUMIRA [Concomitant]
     Active Substance: ADALIMUMAB
     Indication: Psoriatic arthropathy
     Dosage: STRENGTH: 40 MG/0.4ML, EVERY 2 WEEKS
     Route: 058
     Dates: start: 202103

REACTIONS (3)
  - Influenza like illness [Unknown]
  - Brain fog [Unknown]
  - Dysphonia [Unknown]

NARRATIVE: CASE EVENT DATE: 20241020
